FAERS Safety Report 24258448 (Version 1)
Quarter: 2024Q3

REPORT INFORMATION
  Report Type: Report from Study
  Country: GB (occurrence: GB)
  Receive Date: 20240828
  Receipt Date: 20240828
  Transmission Date: 20241017
  Serious: Yes (Other)
  Sender: NOVARTIS
  Company Number: GB-002147023-NVSC2024GB036035

PATIENT
  Sex: Male

DRUGS (1)
  1. COSENTYX [Suspect]
     Active Substance: SECUKINUMAB
     Indication: Ankylosing spondylitis
     Dosage: 300 MG, QMO (WEEKLY FOR 5 LOADING DOSES THEN MONTHLY)
     Route: 065

REACTIONS (5)
  - Ankylosing spondylitis [Unknown]
  - Pain in extremity [Unknown]
  - Lower respiratory tract infection [Recovered/Resolved]
  - Neck pain [Recovering/Resolving]
  - Arthralgia [Recovering/Resolving]
